FAERS Safety Report 25762322 (Version 1)
Quarter: 2025Q3

REPORT INFORMATION
  Report Type: Spontaneous
  Country: US (occurrence: None)
  Receive Date: 20250903
  Receipt Date: 20250903
  Transmission Date: 20251021
  Serious: Yes (Death)
  Sender: FDA-CTU
  Company Number: None

PATIENT
  Age: 77 Year
  Sex: Female

DRUGS (4)
  1. AUSTEDO XR [Suspect]
     Active Substance: DEUTETRABENAZINE
     Indication: Tardive dyskinesia
     Dosage: 36 MG DAILY ORAL ?
     Route: 048
     Dates: start: 20240103
  2. MEMANTINE ER 28 MG CAPSULES [Concomitant]
     Dates: start: 20250625
  3. DONEPEZIL 23 MG TABLETS [Concomitant]
     Dates: start: 20250625
  4. VALACYCLOVIR 1GM TABLETS [Concomitant]
     Dates: start: 20220914

REACTIONS (2)
  - Myocardial infarction [None]
  - Mental status changes [None]

NARRATIVE: CASE EVENT DATE: 20250810
